FAERS Safety Report 8588157 (Version 3)
Quarter: 2012Q4

REPORT INFORMATION
  Report Type: Report from Study
  Country: AT (occurrence: AT)
  Receive Date: 20120531
  Receipt Date: 20120926
  Transmission Date: 20130627
  Serious: Yes (Hospitalization)
  Sender: FDA-Public Use
  Company Number: AT-ROCHE-1068025

PATIENT
  Age: 69 Year
  Sex: Female
  Weight: 67.8 kg

DRUGS (8)
  1. XELODA [Suspect]
     Indication: COLORECTAL CANCER METASTATIC
     Route: 048
     Dates: start: 20120403, end: 20120504
  2. XELODA [Suspect]
     Route: 048
     Dates: start: 20120424, end: 20120504
  3. AVASTIN [Suspect]
     Indication: COLORECTAL CANCER METASTATIC
     Route: 065
     Dates: start: 20120403, end: 20120424
  4. OXALIPLATIN [Suspect]
     Indication: COLORECTAL CANCER METASTATIC
     Route: 065
     Dates: start: 20120403, end: 20120424
  5. THROMBO ASS [Concomitant]
     Route: 065
  6. BISOPROLOL [Concomitant]
     Indication: HYPERTONIA
     Route: 065
  7. RAMIPRIL [Concomitant]
     Indication: HYPERTONIA
     Route: 065
  8. SIMVASTATIN [Concomitant]
     Route: 065

REACTIONS (7)
  - Diarrhoea [Recovered/Resolved]
  - Abdominal pain [Recovered/Resolved]
  - Nausea [Recovered/Resolved]
  - Ileitis [Recovered/Resolved]
  - Hypertonia [Not Recovered/Not Resolved]
  - Vomiting [Recovered/Resolved]
  - Hypertension [Not Recovered/Not Resolved]
